FAERS Safety Report 6969082-7 (Version None)
Quarter: 2010Q3

REPORT INFORMATION
  Report Type: 
  Country: None (occurrence: None)
  Receive Date: 20100903
  Receipt Date: 20100903
  Transmission Date: 20110219
  Serious: Yes (Other)
  Sender: FDA-Public Use
  Company Number: None

PATIENT
  Age: 63 Year
  Sex: Female
  Weight: 74.8435 kg

DRUGS (1)
  1. BONIVA [Suspect]
     Indication: OSTEOPOROSIS
     Dosage: 1 TABLET 1/MONTH PO
     Route: 048
     Dates: start: 20091121, end: 20100621

REACTIONS (13)
  - ABDOMINAL DISTENSION [None]
  - ACTIVITIES OF DAILY LIVING IMPAIRED [None]
  - ANXIETY [None]
  - ARTHRALGIA [None]
  - ARTHRITIS [None]
  - FATIGUE [None]
  - GAIT DISTURBANCE [None]
  - INFLAMMATION [None]
  - INSOMNIA [None]
  - MENTAL DISORDER [None]
  - MUSCLE TIGHTNESS [None]
  - MYALGIA [None]
  - WEIGHT INCREASED [None]
